FAERS Safety Report 4828780-1 (Version None)
Quarter: 2005Q4

REPORT INFORMATION
  Report Type: 
  Country: None (occurrence: None)
  Receive Date: 20051115
  Receipt Date: 20050929
  Transmission Date: 20060501
  Serious: Yes (Hospitalization, Other)
  Sender: FDA-Public Use
  Company Number: US-MERCK-0510USA00466

PATIENT
  Age: 49 Year
  Sex: Male
  Weight: 68 kg

DRUGS (35)
  1. VIOXX [Suspect]
     Indication: ARTHRALGIA
     Route: 048
     Dates: start: 19990101, end: 20040101
  2. REMERON [Concomitant]
     Route: 065
  3. CEPHALEXIN [Concomitant]
     Route: 065
  4. ACETAMINOPHEN AND HYDROCODONE BITARTRATE [Concomitant]
     Route: 065
  5. LORAZEPAN [Concomitant]
     Route: 065
  6. FLUVOXAMINE MALEATE [Concomitant]
     Route: 065
  7. TRAMADOLOR [Concomitant]
     Route: 065
  8. RISPERDAL [Concomitant]
     Route: 065
  9. PLAVIX [Concomitant]
     Route: 065
  10. COREG [Concomitant]
     Route: 065
  11. LISINOPRIL [Concomitant]
     Route: 065
  12. ASPIRIN [Concomitant]
     Route: 065
  13. NITROQUICK [Concomitant]
     Route: 065
  14. RANITIDINE [Concomitant]
     Route: 065
  15. FOLIC ACID [Concomitant]
     Route: 065
  16. LIPITOR [Concomitant]
     Route: 065
  17. PREVACID [Concomitant]
     Route: 065
  18. ULTRAM [Concomitant]
     Route: 065
  19. ACETAMINOPHEN AND CODEINE PHOSPHATE [Concomitant]
     Route: 065
  20. ZYPREXA [Concomitant]
     Route: 065
  21. CLONIDINE [Concomitant]
     Route: 065
  22. ACYCLOVIR [Concomitant]
     Route: 065
  23. COLCHICINE [Concomitant]
     Route: 065
  24. NEURONTIN [Concomitant]
     Route: 065
  25. SEROQUEL [Concomitant]
     Route: 065
  26. AMITRIPTYLINE HYDROCHLORIDE [Concomitant]
     Route: 065
  27. TRAZODONE HYDROCHLORIDE [Concomitant]
     Route: 065
  28. FAMVIR [Concomitant]
     Route: 065
  29. MOTRIN [Concomitant]
     Route: 065
  30. ALPRAZOLAM [Concomitant]
     Route: 065
  31. FLEXEN (NAPROXEN) [Concomitant]
     Route: 065
  32. PEPCID [Concomitant]
     Route: 065
  33. WELLBUTRIN [Concomitant]
     Route: 065
  34. BUSPIRONE HYDROCHLORIDE [Concomitant]
     Route: 065
  35. LEXAPRO [Concomitant]
     Route: 065

REACTIONS (3)
  - CONVULSION [None]
  - MYOCARDIAL INFARCTION [None]
  - THROMBOSIS [None]
